FAERS Safety Report 23187018 (Version 2)
Quarter: 2023Q4

REPORT INFORMATION
  Report Type: Report from Study
  Country: US (occurrence: US)
  Receive Date: 20231115
  Receipt Date: 20231207
  Transmission Date: 20240110
  Serious: Yes (Other)
  Sender: FDA-Public Use
  Company Number: US-ALXN-A202307794AA

PATIENT
  Sex: Male

DRUGS (3)
  1. ULTOMIRIS [Suspect]
     Active Substance: RAVULIZUMAB-CWVZ
     Indication: Myasthenia gravis
     Dosage: UNK
     Route: 065
  2. ULTOMIRIS [Suspect]
     Active Substance: RAVULIZUMAB-CWVZ
     Dosage: UNK
     Route: 042
  3. MESTINON [Suspect]
     Active Substance: PYRIDOSTIGMINE BROMIDE
     Indication: Product used for unknown indication
     Dosage: 20 MG, QID
     Route: 065
     Dates: start: 202308

REACTIONS (9)
  - Myasthenia gravis [Unknown]
  - Feeling abnormal [Unknown]
  - Muscle fatigue [Not Recovered/Not Resolved]
  - Mastication disorder [Unknown]
  - Gait disturbance [Unknown]
  - Muscle atrophy [Unknown]
  - Rash [Unknown]
  - Fatigue [Recovering/Resolving]
  - Asthenia [Unknown]
